FAERS Safety Report 8186928-8 (Version None)
Quarter: 2012Q1

REPORT INFORMATION
  Report Type: 
  Country: None (occurrence: None)
  Receive Date: 20120302
  Receipt Date: 20120218
  Transmission Date: 20120608
  Serious: Yes (Hospitalization)
  Sender: FDA-Public Use
  Company Number: 2012AP000452

PATIENT
  Age: 15 Year
  Sex: Male

DRUGS (1)
  1. BUPROPION HYDROCHLORIDE [Suspect]
     Indication: DEPRESSION
     Dosage: 150 MG; QD;

REACTIONS (7)
  - POOR PERSONAL HYGIENE [None]
  - CATATONIA [None]
  - SOCIAL AVOIDANT BEHAVIOUR [None]
  - SUSPICIOUSNESS [None]
  - HYPOPHAGIA [None]
  - DELUSION [None]
  - PSYCHOTIC DISORDER [None]
